FAERS Safety Report 8607114 (Version 5)
Quarter: 2014Q2

REPORT INFORMATION
  Report Type: Spontaneous
  Country: US (occurrence: US)
  Receive Date: 20120611
  Receipt Date: 20140422
  Transmission Date: 20141212
  Serious: Yes (Hospitalization, Other)
  Sender: FDA-Public Use
  Company Number: US-ASTRAZENECA-2012SE36219

PATIENT
  Age: 47 Year
  Sex: Female

DRUGS (28)
  1. NEXIUM [Suspect]
     Indication: GASTROOESOPHAGEAL REFLUX DISEASE
     Route: 048
     Dates: start: 2002, end: 2010
  2. NEXIUM [Suspect]
     Indication: HIATUS HERNIA
     Route: 048
     Dates: start: 2002, end: 2010
  3. NEXIUM [Suspect]
     Indication: GASTROOESOPHAGEAL REFLUX DISEASE
     Dosage: ONCE DAILY AND TWICE DAILY
     Route: 048
     Dates: start: 2004, end: 2012
  4. NEXIUM [Suspect]
     Indication: HIATUS HERNIA
     Dosage: ONCE DAILY AND TWICE DAILY
     Route: 048
     Dates: start: 2004, end: 2012
  5. NEXIUM [Suspect]
     Indication: GASTROOESOPHAGEAL REFLUX DISEASE
     Route: 048
     Dates: start: 20060801
  6. NEXIUM [Suspect]
     Indication: HIATUS HERNIA
     Route: 048
     Dates: start: 20060801
  7. NEXIUM [Suspect]
     Indication: GASTROOESOPHAGEAL REFLUX DISEASE
     Route: 048
     Dates: start: 20060707
  8. NEXIUM [Suspect]
     Indication: HIATUS HERNIA
     Route: 048
     Dates: start: 20060707
  9. PRILOSEC [Suspect]
     Indication: GASTROOESOPHAGEAL REFLUX DISEASE
     Route: 048
     Dates: start: 2001, end: 20110112
  10. PRILOSEC [Suspect]
     Indication: GASTROOESOPHAGEAL REFLUX DISEASE
     Route: 048
     Dates: start: 20110112
  11. PRILOSEC [Suspect]
     Indication: GASTROOESOPHAGEAL REFLUX DISEASE
     Route: 048
     Dates: start: 20100615
  12. PROTONIX [Concomitant]
     Indication: GASTROOESOPHAGEAL REFLUX DISEASE
     Dates: start: 20110112, end: 20110212
  13. ASPIRIN [Concomitant]
     Dates: start: 2012
  14. ALPRAZOLAM [Concomitant]
     Dates: start: 20060714
  15. AMBIEN [Concomitant]
     Dates: start: 20060815
  16. TIZANIDINE [Concomitant]
     Dates: start: 20060815
  17. PROMETHAZINE [Concomitant]
     Dates: start: 20060912
  18. MORPHINE SULFATE [Concomitant]
     Dates: start: 20060815
  19. CARBAMAZEPINE [Concomitant]
     Dates: start: 20060911
  20. BUPROPION [Concomitant]
     Dates: start: 20060815
  21. LEXAPRO [Concomitant]
     Dates: start: 20070103
  22. PHENAZOPYRID [Concomitant]
     Dates: start: 20071017
  23. TIZANIDINE HCL [Concomitant]
     Dates: start: 20070529
  24. PROCHLORPERAZINE [Concomitant]
     Dates: start: 20080731
  25. CYMBALTA [Concomitant]
     Dates: start: 20070216
  26. FAMOTIDINE [Concomitant]
     Dates: start: 20110520
  27. METHADONE [Concomitant]
     Dates: start: 20070620
  28. PREDNISONE [Concomitant]
     Dates: start: 20111013

REACTIONS (14)
  - Hip fracture [Unknown]
  - Pancreatitis [Unknown]
  - Pneumonia [Unknown]
  - Femur fracture [Unknown]
  - Fall [Unknown]
  - Osteoporosis [Unknown]
  - Multiple fractures [Unknown]
  - Pain [Unknown]
  - Hypothyroidism [Unknown]
  - Lower limb fracture [Unknown]
  - Osteoarthritis [Unknown]
  - Chronic obstructive pulmonary disease [Unknown]
  - Arthritis [Unknown]
  - Depression [Unknown]
